FAERS Safety Report 13242099 (Version 1)
Quarter: 2017Q1

REPORT INFORMATION
  Report Type: Spontaneous
  Country: US (occurrence: US)
  Receive Date: 20170216
  Receipt Date: 20170216
  Transmission Date: 20170428
  Serious: No
  Sender: FDA-Public Use
  Company Number: None

PATIENT
  Age: 34 Year
  Sex: Female

DRUGS (24)
  1. TALTZ [Suspect]
     Active Substance: IXEKIZUMAB
     Indication: PSORIASIS
     Dosage: 80MG WEEK2,4,6,8,10+12 SUBCUTANEOUSLY
     Route: 058
     Dates: start: 20161202
  2. VITAMIN D [Concomitant]
     Active Substance: CHOLECALCIFEROL
  3. SALSALATE. [Concomitant]
     Active Substance: SALSALATE
  4. ASPIRIN. [Concomitant]
     Active Substance: ASPIRIN
  5. CELEBREX [Concomitant]
     Active Substance: CELECOXIB
  6. FLUCONAZOLE. [Concomitant]
     Active Substance: FLUCONAZOLE
  7. FOLIC ACID. [Concomitant]
     Active Substance: FOLIC ACID
  8. WAL-ZAN [Concomitant]
     Active Substance: RANITIDINE HYDROCHLORIDE
  9. CLINDAMYCIN. [Concomitant]
     Active Substance: CLINDAMYCIN
  10. METHOTREXATE. [Concomitant]
     Active Substance: METHOTREXATE
  11. MINOCYCLINE [Concomitant]
     Active Substance: MINOCYCLINE\MINOCYCLINE HYDROCHLORIDE
  12. OXYCODONE [Concomitant]
     Active Substance: OXYCODONE
  13. GLIPIZIDE. [Concomitant]
     Active Substance: GLIPIZIDE
  14. HYDROCODONE [Concomitant]
     Active Substance: HYDROCODONE
  15. TRAZODONE [Concomitant]
     Active Substance: TRAZODONE HYDROCHLORIDE
  16. AMOXICILLIN. [Concomitant]
     Active Substance: AMOXICILLIN
  17. ATORVASTATIN [Concomitant]
     Active Substance: ATORVASTATIN
  18. CLOBETASOL [Concomitant]
     Active Substance: CLOBETASOL
  19. LISINOPRIL. [Concomitant]
     Active Substance: LISINOPRIL
  20. MELOXICAM. [Concomitant]
     Active Substance: MELOXICAM
  21. CELECOXIB. [Concomitant]
     Active Substance: CELECOXIB
  22. METFORMIN [Concomitant]
     Active Substance: METFORMIN HYDROCHLORIDE
  23. PREDNISONE. [Concomitant]
     Active Substance: PREDNISONE
  24. VICODIN [Concomitant]
     Active Substance: ACETAMINOPHEN\HYDROCODONE BITARTRATE

REACTIONS (3)
  - Infection [None]
  - Nonspecific reaction [None]
  - Therapy cessation [None]
